FAERS Safety Report 9997488 (Version 1)
Quarter: 2014Q1

REPORT INFORMATION
  Report Type: Spontaneous
  Country: US (occurrence: US)
  Receive Date: 20140311
  Receipt Date: 20140311
  Transmission Date: 20141002
  Serious: No
  Sender: FDA-Public Use
  Company Number: US-GLAXOSMITHKLINE-A1050103A

PATIENT
  Age: 67 Year
  Sex: Female

DRUGS (2)
  1. NICORETTE [Suspect]
     Indication: SMOKING CESSATION THERAPY
  2. WELLBUTRIN [Suspect]
     Indication: ANXIETY

REACTIONS (2)
  - Nausea [Unknown]
  - Urticaria [Unknown]
